FAERS Safety Report 5027814-1 (Version None)
Quarter: 2006Q2

REPORT INFORMATION
  Report Type: 
  Country: None (occurrence: None)
  Receive Date: 20060614
  Receipt Date: 20060614
  Transmission Date: 20061013
  Serious: Yes (Hospitalization)
  Sender: FDA-Public Use
  Company Number: None

PATIENT
  Age: 57 Year
  Sex: Male
  Weight: 54.8852 kg

DRUGS (11)
  1. ERBITUX [Suspect]
     Indication: NEOPLASM MALIGNANT
     Dosage: 708 MG IV OVER 120 MIN
     Route: 042
     Dates: start: 20060509, end: 20060516
  2. CISPLATIN [Suspect]
     Indication: NEOPLASM MALIGNANT
     Dosage: NOT DOSED AS OF A/E
  3. NEXIUM [Concomitant]
  4. FOLIC ACID [Concomitant]
  5. THIAMINE [Concomitant]
  6. MTV [Concomitant]
  7. COLACE [Concomitant]
  8. LORTAB [Concomitant]
  9. DURAGESIC-100 [Concomitant]
  10. ANUSOL CREAM [Concomitant]
  11. DUONEB [Concomitant]

REACTIONS (11)
  - ABDOMINAL PAIN [None]
  - ACUTE RESPIRATORY DISTRESS SYNDROME [None]
  - CHRONIC OBSTRUCTIVE PULMONARY DISEASE [None]
  - DYSURIA [None]
  - ELECTROLYTE IMBALANCE [None]
  - GASTROOESOPHAGEAL REFLUX DISEASE [None]
  - HYPERTENSION [None]
  - MALAISE [None]
  - PNEUMONIA [None]
  - SPUTUM DISCOLOURED [None]
  - URINARY RETENTION [None]
